FAERS Safety Report 5513338-1 (Version None)
Quarter: 2007Q4

REPORT INFORMATION
  Report Type: 
  Country: None (occurrence: None)
  Receive Date: 20071112
  Receipt Date: 20070828
  Transmission Date: 20080405
  Serious: Yes (Other)
  Sender: FDA-Public Use
  Company Number: US-PFIZER INC-2007072315

PATIENT
  Sex: Male

DRUGS (3)
  1. CHANTIX [Suspect]
     Indication: EX-SMOKER
     Dates: start: 20070605, end: 20070807
  2. KEPPRA [Concomitant]
  3. OMEPRAZOLE [Concomitant]

REACTIONS (3)
  - BLOOD LACTIC ACID INCREASED [None]
  - CONVULSION [None]
  - MYOGLOBIN BLOOD INCREASED [None]
